FAERS Safety Report 8818831 (Version 2)
Quarter: 2012Q4

REPORT INFORMATION
  Report Type: Report from Study
  Country: US (occurrence: US)
  Receive Date: 20121001
  Receipt Date: 20121003
  Transmission Date: 20130627
  Serious: Yes (Hospitalization)
  Sender: FDA-Public Use
  Company Number: US-TEVA-361102USA

PATIENT
  Age: 7 Month
  Sex: Male
  Weight: 8 kg

DRUGS (9)
  1. LESTAURTINIB [Suspect]
     Indication: ACUTE LYMPHOCYTIC LEUKAEMIA
     Dates: start: 20120619
  2. CYCLOPHOSPHAMIDE [Suspect]
     Dates: start: 20120619
  3. CYTARABINE [Suspect]
     Route: 037
     Dates: start: 20120619
  4. DAUNORUBICIN [Suspect]
     Dates: start: 20120619
  5. DEXAMETHASONE [Suspect]
     Dates: start: 20120619
  6. HYDROCORTISONE [Suspect]
     Route: 037
     Dates: start: 20120619
  7. METHOTREXATE [Suspect]
     Route: 037
     Dates: start: 20120619
  8. ASPARAGINASE [Suspect]
     Dates: start: 20120619
  9. VINCRISTINE [Suspect]
     Dates: start: 20120619

REACTIONS (1)
  - Febrile neutropenia [Recovered/Resolved with Sequelae]
